FAERS Safety Report 13939963 (Version 2)
Quarter: 2017Q4

REPORT INFORMATION
  Report Type: Spontaneous
  Country: JP (occurrence: JP)
  Receive Date: 20170906
  Receipt Date: 20171003
  Transmission Date: 20180320
  Serious: Yes (Hospitalization)
  Sender: FDA-Public Use
  Company Number: PHHY2017JP130165

PATIENT

DRUGS (1)
  1. RECLAST [Suspect]
     Active Substance: ZOLEDRONIC ACID
     Indication: PRODUCT USED FOR UNKNOWN INDICATION
     Dosage: 5 MG, ONCE/SINGLE
     Route: 041
     Dates: start: 20170824

REACTIONS (2)
  - Cardiac failure [Unknown]
  - Pyrexia [Unknown]

NARRATIVE: CASE EVENT DATE: 20170824
